FAERS Safety Report 6067560-9 (Version None)
Quarter: 2009Q1

REPORT INFORMATION
  Report Type: 
  Country: None (occurrence: None)
  Receive Date: 20090205
  Receipt Date: 20090123
  Transmission Date: 20090719
  Serious: Yes (Death)
  Sender: FDA-Public Use
  Company Number: AT-ABBOTT-09P-009-0501726-00

PATIENT
  Sex: Male

DRUGS (3)
  1. TRENANTONE [Suspect]
     Indication: PROSTATE CANCER METASTATIC
     Route: 058
     Dates: start: 20030601, end: 20040529
  2. ANTIANDROGENS [Concomitant]
     Indication: PROSTATE CANCER METASTATIC
  3. RADIATION THERAPY [Concomitant]
     Indication: PROSTATE CANCER METASTATIC

REACTIONS (1)
  - PNEUMONIA [None]
